FAERS Safety Report 20922000 (Version 1)
Quarter: 2022Q2

REPORT INFORMATION
  Report Type: Spontaneous
  Country: US (occurrence: US)
  Receive Date: 20220607
  Receipt Date: 20220607
  Transmission Date: 20220721
  Serious: No
  Sender: FDA-Public Use
  Company Number: US-BIOVITRUM-2022US07259

PATIENT
  Age: 1 Year
  Sex: Male
  Weight: 13 kg

DRUGS (14)
  1. SYNAGIS [Suspect]
     Active Substance: PALIVIZUMAB
     Indication: Cystic fibrosis
     Route: 030
     Dates: start: 20220216
  2. SYNAGIS [Suspect]
     Active Substance: PALIVIZUMAB
     Indication: Respiratory disorder
  3. CIPROFLOXACIN [Concomitant]
     Active Substance: CIPROFLOXACIN
  4. ALBUTEROL SULFATE [Concomitant]
     Active Substance: ALBUTEROL SULFATE
  5. FAMOTIDINE 100% POWDER [Concomitant]
  6. CREON [Concomitant]
     Active Substance: PANCRELIPASE AMYLASE\PANCRELIPASE LIPASE\PANCRELIPASE PROTEASE
  7. HYOSYNE [Concomitant]
     Active Substance: HYOSCYAMINE SULFATE
  8. POLY-VI-SOL 250-50/ML DROPS [Concomitant]
  9. KITABIS PAK [Concomitant]
     Active Substance: TOBRAMYCIN
  10. KALYDECO [Concomitant]
     Active Substance: IVACAFTOR
  11. AMOXICILLIN-CLAVULANAT [Concomitant]
  12. PULMOZYME [Concomitant]
     Active Substance: DORNASE ALFA
  13. OMEPRAZOLE 100% POWDER [Concomitant]
  14. HYPER-SAL 3.5% VIAL-NEB [Concomitant]

REACTIONS (2)
  - Pseudomonas infection [Unknown]
  - Off label use [Unknown]

NARRATIVE: CASE EVENT DATE: 20220416
